FAERS Safety Report 4632632-X (Version None)
Quarter: 2005Q2

REPORT INFORMATION
  Report Type: 
  Country: None (occurrence: None)
  Receive Date: 20050331
  Receipt Date: 20040831
  Transmission Date: 20051028
  Serious: Yes (Other)
  Sender: FDA-Public Use
  Company Number: 200414261BCC

PATIENT
  Age: 69 Year
  Sex: Male
  Weight: 88.4514 kg

DRUGS (5)
  1. ALEVE (CAPLET) [Suspect]
     Indication: ARTHRITIS
     Dosage: SEE IMAGE
     Route: 048
     Dates: start: 20040609, end: 20040611
  2. ALEVE (CAPLET) [Suspect]
     Indication: ARTHRITIS
     Dosage: SEE IMAGE
     Route: 048
     Dates: start: 20040608
  3. ZOCOR [Concomitant]
  4. DIOVAN [Concomitant]
  5. AMOXICILLIN [Concomitant]

REACTIONS (7)
  - ANAPHYLACTIC SHOCK [None]
  - BLOOD PRESSURE DECREASED [None]
  - FEELING ABNORMAL [None]
  - HYPOTENSION [None]
  - NAUSEA [None]
  - PHOTOPHOBIA [None]
  - RASH [None]
